FAERS Safety Report 5586206-7 (Version None)
Quarter: 2008Q1

REPORT INFORMATION
  Report Type: 
  Country: None (occurrence: None)
  Receive Date: 20080107
  Receipt Date: 20071221
  Transmission Date: 20080703
  Serious: Yes (Death, Other)
  Sender: FDA-Public Use
  Company Number: 2007US003131

PATIENT
  Age: 74 Year
  Sex: Male

DRUGS (4)
  1. MYCAMINE [Suspect]
     Indication: FUNGAL INFECTION
     Dosage: 100 MG, UID QD; 150 MG, UID/QD, 100 MG UID, QD
     Dates: start: 20070810, end: 20070824
  2. MYCAMINE [Suspect]
     Indication: FUNGAL INFECTION
     Dosage: 100 MG, UID QD; 150 MG, UID/QD, 100 MG UID, QD
     Dates: start: 20071002, end: 20071002
  3. MYCAMINE [Suspect]
     Indication: FUNGAL INFECTION
     Dosage: 100 MG, UID QD; 150 MG, UID/QD, 100 MG UID, QD
     Dates: start: 20071003, end: 20071030
  4. DIFLUCAN [Concomitant]

REACTIONS (30)
  - ACIDOSIS [None]
  - ALANINE AMINOTRANSFERASE INCREASED [None]
  - ANAEMIA [None]
  - ASPARTATE AMINOTRANSFERASE INCREASED [None]
  - BACTERIAL INFECTION [None]
  - BLOOD ALKALINE PHOSPHATASE INCREASED [None]
  - BLOOD BILIRUBIN INCREASED [None]
  - BLOOD CULTURE POSITIVE [None]
  - CATHETER SEPSIS [None]
  - CONFUSIONAL STATE [None]
  - CULTURE URINE POSITIVE [None]
  - EJECTION FRACTION DECREASED [None]
  - ENTEROCUTANEOUS FISTULA [None]
  - HAEMODIALYSIS [None]
  - HAEMORRHAGE [None]
  - HYPERTENSION [None]
  - ILL-DEFINED DISORDER [None]
  - INTERNATIONAL NORMALISED RATIO INCREASED [None]
  - LEUKAEMOID REACTION [None]
  - MENTAL STATUS CHANGES [None]
  - MULTI-ORGAN FAILURE [None]
  - POST PROCEDURAL COMPLICATION [None]
  - POST PROCEDURAL HAEMORRHAGE [None]
  - PYREXIA [None]
  - RENAL FAILURE ACUTE [None]
  - RESPIRATORY DISTRESS [None]
  - SEPSIS [None]
  - SKIN GRAFT [None]
  - TACHYCARDIA [None]
  - TACHYPNOEA [None]
